FAERS Safety Report 6380396-4 (Version None)
Quarter: 2009Q3

REPORT INFORMATION
  Report Type: 
  Country: None (occurrence: None)
  Receive Date: 20090929
  Receipt Date: 20090921
  Transmission Date: 20100115
  Serious: Yes (Life-Threatening)
  Sender: FDA-Public Use
  Company Number: PL-ASTRAZENECA-2009SE15265

PATIENT
  Age: 22122 Day
  Sex: Male
  Weight: 80 kg

DRUGS (2)
  1. MARCAINE ADRENALINE [Suspect]
     Indication: ANALGESIA
     Route: 030
     Dates: start: 20090915, end: 20090915
  2. LIGNOCAINE [Suspect]
     Indication: ANALGESIA
     Route: 030
     Dates: start: 20090915, end: 20090915

REACTIONS (2)
  - BRADYCARDIA [None]
  - CARDIAC FAILURE [None]
